FAERS Safety Report 9859572 (Version 1)
Quarter: 2014Q1

REPORT INFORMATION
  Report Type: Spontaneous
  Country: GB (occurrence: GB)
  Receive Date: 20140131
  Receipt Date: 20140131
  Transmission Date: 20141002
  Serious: Yes (Disabling, Other)
  Sender: FDA-Public Use
  Company Number: GB-ASTRAZENECA-2014SE04859

PATIENT
  Age: 66 Year
  Sex: Male
  Weight: 80.7 kg

DRUGS (3)
  1. LIDOCAINE [Suspect]
     Indication: HAEMORRHOIDS
     Route: 061
     Dates: start: 20130430, end: 20140101
  2. LIDOCAINE [Suspect]
     Indication: ANAL FISSURE
     Route: 061
     Dates: start: 20130430, end: 20140101
  3. LEVOTHYROXINE [Concomitant]

REACTIONS (8)
  - Abdominal pain [Unknown]
  - Back pain [Recovering/Resolving]
  - Chest pain [Unknown]
  - Chest discomfort [Recovering/Resolving]
  - Discomfort [Unknown]
  - Disorientation [Unknown]
  - Dyspnoea [Recovering/Resolving]
  - Dizziness [Recovering/Resolving]
